FAERS Safety Report 5214323-X (Version None)
Quarter: 2007Q1

REPORT INFORMATION
  Report Type: 
  Country: None (occurrence: None)
  Receive Date: 20070122
  Receipt Date: 20070110
  Transmission Date: 20070707
  Serious: Yes (Hospitalization)
  Sender: FDA-Public Use
  Company Number: DE-MERCK-0701DEU00051

PATIENT
  Sex: Male

DRUGS (12)
  1. ZETIA [Suspect]
     Route: 048
  2. SIMVASTATIN [Suspect]
     Indication: LIPID METABOLISM DISORDER
     Route: 065
  3. EVEROLIMUS [Suspect]
     Indication: HEART TRANSPLANT
     Route: 065
     Dates: start: 20060501
  4. CYCLOSPORINE [Suspect]
     Indication: HEART TRANSPLANT
     Route: 065
  5. MYCOPHENOLATE MOFETIL [Concomitant]
     Indication: HEART TRANSPLANT
     Route: 065
  6. PREDNISOLONE [Concomitant]
     Route: 065
  7. HEPARIN [Concomitant]
     Route: 065
  8. ASPIRIN [Concomitant]
     Route: 065
  9. ACETYLDIGOXIN [Concomitant]
     Route: 065
  10. DILTIAZEM HYDROCHLORIDE [Concomitant]
     Route: 065
  11. FUROSEMIDE [Concomitant]
     Route: 065
  12. PANTOPRAZOLE SODIUM [Concomitant]
     Route: 065

REACTIONS (3)
  - BLOOD CREATINE PHOSPHOKINASE INCREASED [None]
  - BLOOD CREATININE INCREASED [None]
  - RENAL FAILURE ACUTE [None]
